FAERS Safety Report 17950686 (Version 2)
Quarter: 2020Q3

REPORT INFORMATION
  Report Type: Report from Study
  Country: FR (occurrence: FR)
  Receive Date: 20200626
  Receipt Date: 20200731
  Transmission Date: 20201103
  Serious: Yes (Life-Threatening, Hospitalization)
  Sender: FDA-Public Use
  Company Number: FR-MYLANLABS-2020M1058021

PATIENT
  Age: 55 Year
  Sex: Male

DRUGS (25)
  1. NACL [Concomitant]
     Active Substance: SODIUM CHLORIDE
     Dosage: UNK
  2. HEPARIN [Concomitant]
     Active Substance: HEPARIN SODIUM
     Dosage: UNK
  3. PIPERACILLIN/TAZOBACTAM [Suspect]
     Active Substance: PIPERACILLIN SODIUM\TAZOBACTAM SODIUM
     Indication: ANTIBIOTIC THERAPY
     Dosage: UNK
     Dates: start: 20200413
  4. NOVORAPID [Concomitant]
     Active Substance: INSULIN ASPART
     Dosage: UNK
  5. SARILUMAB [Suspect]
     Active Substance: SARILUMAB
     Indication: COVID-19
     Dosage: 400 MG, 1X
     Route: 042
     Dates: start: 20200406, end: 20200406
  6. SARILUMAB [Suspect]
     Active Substance: SARILUMAB
     Dosage: 400 MG, 1X
     Route: 042
     Dates: start: 20200408, end: 20200408
  7. PROPOFOL. [Concomitant]
     Active Substance: PROPOFOL
     Dosage: UNK
  8. RAMIPRIL. [Concomitant]
     Active Substance: RAMIPRIL
     Dosage: UNK
  9. LEVOFLOXACIN. [Concomitant]
     Active Substance: LEVOFLOXACIN
  10. PHOCYTAN [Concomitant]
     Active Substance: .ALPHA.-GLUCOSE-1-PHOSPHATE
  11. LASILIX                            /00032601/ [Concomitant]
     Active Substance: FUROSEMIDE
     Dosage: UNK
  12. SARILUMAB [Suspect]
     Active Substance: SARILUMAB
     Dosage: 400 MG, 1X
     Route: 042
  13. SPASFON                            /00934601/ [Concomitant]
     Active Substance: PHLOROGLUCINOL
     Dosage: UNK
  14. MAGNESIUM SULFATE. [Concomitant]
     Active Substance: MAGNESIUM SULFATE
     Dosage: UNK
  15. VALIUM [Concomitant]
     Active Substance: DIAZEPAM
     Dosage: UNK
  16. MOVICOL [Concomitant]
     Active Substance: POLYETHYLENE GLYCOL 3350\POTASSIUM CHLORIDE\SODIUM BICARBONATE\SODIUM CHLORIDE
     Dosage: UNK
  17. CERNEVIT [Concomitant]
     Active Substance: VITAMINS
     Dosage: UNK
  18. NUTRYELT [Concomitant]
     Active Substance: IRON\MINERALS\POTASSIUM IOD\SODIUM FLUORIDE\SODIUM MOLYBDATE\SODIUM SELENITE\ZINC
     Dosage: UNK
  19. HALDOL [Concomitant]
     Active Substance: HALOPERIDOL
     Dosage: UNK
  20. VITAMINE B1 B6 B12 ROCHE [Concomitant]
     Dosage: UNK
  21. SUFENTANIL [Concomitant]
     Active Substance: SUFENTANIL
     Dosage: UNK
  22. KCL [Concomitant]
     Active Substance: POTASSIUM CHLORIDE
     Dosage: UNK
  23. EUPRESSYL                          /00631802/ [Concomitant]
     Active Substance: URAPIDIL HYDROCHLORIDE
     Dosage: UNK
  24. LAROXYL [Concomitant]
     Active Substance: AMITRIPTYLINE HYDROCHLORIDE
     Dosage: UNK
  25. LANSOPRAZOLE. [Concomitant]
     Active Substance: LANSOPRAZOLE
     Dosage: UNK

REACTIONS (6)
  - Neuromyopathy [Recovered/Resolved]
  - Gastrointestinal ulcer haemorrhage [Recovered/Resolved]
  - Cholecystitis acute [Recovered/Resolved]
  - Pneumonia [Recovered/Resolved]
  - Hepatocellular injury [Recovered/Resolved]
  - Hypotonia [Recovered/Resolved]

NARRATIVE: CASE EVENT DATE: 20200413
